FAERS Safety Report 9714158 (Version 1)
Quarter: 2013Q4

REPORT INFORMATION
  Report Type: Spontaneous
  Country: US (occurrence: None)
  Receive Date: 20131122
  Receipt Date: 20131122
  Transmission Date: 20140711
  Serious: Yes (Hospitalization)
  Sender: FDA-Public Use
  Company Number: 2013-1806

PATIENT
  Age: 43 Year
  Sex: Female

DRUGS (6)
  1. KYPROLIS [Suspect]
     Indication: PLASMA CELL MYELOMA
     Dosage: 2 IN 1 WK, INTRAVENOUS
     Route: 042
     Dates: start: 201210
  2. DECADRON (DEXAMETHASONE) (DEXAMETHASONE) [Concomitant]
  3. LISINOPRIL (LISINOPRIL) (LISINOPRIL) [Concomitant]
  4. LIPITOR (ATORVASTATIN CALCIUM) (ATORVASTATIN CALCIUM) [Concomitant]
  5. COLONIDINE (CLONIDINE) (CLONIDINE) [Concomitant]
  6. DILANTIN (PHENYTOIN) (PHENYTOIN) [Concomitant]

REACTIONS (6)
  - Dehydration [None]
  - Liver injury [None]
  - Hepatic failure [None]
  - Pneumonia streptococcal [None]
  - Streptococcal sepsis [None]
  - Urinary tract infection bacterial [None]
